FAERS Safety Report 4823541-1 (Version None)
Quarter: 2005Q4

REPORT INFORMATION
  Report Type: 
  Country: None (occurrence: None)
  Receive Date: 20051107
  Receipt Date: 20051025
  Transmission Date: 20060501
  Serious: Yes (Hospitalization)
  Sender: FDA-Public Use
  Company Number: 2005BI014282

PATIENT
  Age: 73 Year
  Sex: Female
  Weight: 53.5244 kg

DRUGS (1)
  1. AVONEX [Suspect]
     Indication: MULTIPLE SCLEROSIS
     Dosage: 30 UG QW IM
     Route: 030
     Dates: start: 20031001, end: 20050629

REACTIONS (8)
  - COLITIS [None]
  - CONDITION AGGRAVATED [None]
  - FALL [None]
  - FRACTURED COCCYX [None]
  - GASTROINTESTINAL INFECTION [None]
  - MULTIPLE SCLEROSIS [None]
  - RASH [None]
  - WEIGHT DECREASED [None]
